FAERS Safety Report 6230060-7 (Version None)
Quarter: 2009Q2

REPORT INFORMATION
  Report Type: 
  Country: None (occurrence: None)
  Receive Date: 20090615
  Receipt Date: 20090527
  Transmission Date: 20091009
  Serious: Yes (Hospitalization, Other)
  Sender: FDA-Public Use
  Company Number: IL-GENENTECH-283895

PATIENT
  Sex: Female

DRUGS (6)
  1. AVASTIN [Suspect]
     Indication: OVARIAN CANCER
     Dosage: UNK MG, Q2W
     Route: 042
     Dates: start: 20081001, end: 20090501
  2. TAXOL [Concomitant]
     Indication: DRUG USE FOR UNKNOWN INDICATION
     Dosage: UNK
     Dates: start: 20081001, end: 20090501
  3. ANTIHYPERTENSIVE AGENTS [Concomitant]
     Indication: HYPERTENSION
     Dosage: UNK
  4. OSMO-ADALAT [Concomitant]
     Indication: DRUG USE FOR UNKNOWN INDICATION
     Dosage: UNK
  5. PROLOL [Concomitant]
     Indication: DRUG USE FOR UNKNOWN INDICATION
     Dosage: UNK
  6. LIPITOR [Concomitant]
     Indication: DRUG USE FOR UNKNOWN INDICATION
     Dosage: UNK

REACTIONS (7)
  - ASCITES [None]
  - COUGH [None]
  - DECREASED APPETITE [None]
  - NAUSEA [None]
  - PLEURAL EFFUSION [None]
  - PNEUMOPERITONEUM [None]
  - URINARY TRACT INFECTION [None]
